FAERS Safety Report 22983726 (Version 2)
Quarter: 2024Q3

REPORT INFORMATION
  Report Type: Spontaneous
  Country: SE (occurrence: SE)
  Receive Date: 20230926
  Receipt Date: 20240826
  Transmission Date: 20241017
  Serious: Yes (Other)
  Sender: BRAEBURN PHARMACEUTICALS
  Company Number: SE-CAMURUS AB-SE-CAM-23-00649

PATIENT

DRUGS (1)
  1. BUPRENORPHINE [Suspect]
     Active Substance: BUPRENORPHINE
     Indication: Product used for unknown indication
     Dosage: UNK MILLIGRAM
     Route: 065

REACTIONS (8)
  - Suicidal ideation [Unknown]
  - Fatigue [Unknown]
  - Dyspepsia [Unknown]
  - Blood testosterone decreased [Unknown]
  - Apathy [Unknown]
  - Decreased appetite [Unknown]
  - Depression [Unknown]
  - Feeling abnormal [Unknown]
